FAERS Safety Report 22122597 (Version 1)
Quarter: 2023Q1

REPORT INFORMATION
  Report Type: Spontaneous
  Country: US (occurrence: US)
  Receive Date: 20230321
  Receipt Date: 20230321
  Transmission Date: 20230418
  Serious: Yes (Hospitalization, Other)
  Sender: FDA-Public Use
  Company Number: US-TWI PHARMACEUTICAL, INC-2023SCTW000012

PATIENT

DRUGS (9)
  1. BUPROPION HYDROCHLORIDE XL [Interacting]
     Active Substance: BUPROPION HYDROCHLORIDE
     Indication: Product used for unknown indication
     Dosage: 450 MG, DAILY
     Route: 065
  2. YOHIMBINE [Interacting]
     Active Substance: YOHIMBINE
     Indication: Supplementation therapy
     Dosage: UNK UNK, UNKNOWN
     Route: 065
  3. CLONIDINE [Interacting]
     Active Substance: CLONIDINE
     Indication: Product used for unknown indication
     Dosage: 0.1 MG, TID
     Route: 065
  4. DESVENLAFAXINE [Interacting]
     Active Substance: DESVENLAFAXINE
     Indication: Product used for unknown indication
     Dosage: 200 MG, DAILY
     Route: 065
  5. LISDEXAMFETAMINE [Interacting]
     Active Substance: LISDEXAMFETAMINE
     Indication: Product used for unknown indication
     Dosage: 60 MG, MORNING
     Route: 065
  6. LISDEXAMFETAMINE [Interacting]
     Active Substance: LISDEXAMFETAMINE
     Dosage: 40 MG, AFTERNOON
     Route: 065
  7. TRAZODONE [Interacting]
     Active Substance: TRAZODONE HYDROCHLORIDE
     Indication: Product used for unknown indication
     Dosage: 100 MG, NIGHTLY
     Route: 065
  8. LEVONORGESTREL [Interacting]
     Active Substance: LEVONORGESTREL
     Indication: Product used for unknown indication
     Dosage: UNK, UNKNOWN
     Route: 015
  9. BUPRENORPHINE HYDROCHLORIDE\NALOXONE HYDROCHLORIDE [Interacting]
     Active Substance: BUPRENORPHINE HYDROCHLORIDE\NALOXONE HYDROCHLORIDE
     Indication: Product used for unknown indication
     Dosage: 1.5 UNK, DAILY
     Route: 065

REACTIONS (2)
  - Haemorrhage intracranial [Unknown]
  - Drug interaction [Unknown]
